FAERS Safety Report 9552018 (Version 1)
Quarter: 2013Q3

REPORT INFORMATION
  Report Type: Spontaneous
  Country: US (occurrence: US)
  Receive Date: 20130925
  Receipt Date: 20130925
  Transmission Date: 20140515
  Serious: Yes (Other)
  Sender: FDA-Public Use
  Company Number: PHEH2013US019827

PATIENT
  Sex: Female

DRUGS (10)
  1. TASIGNA [Suspect]
     Indication: CHRONIC MYELOID LEUKAEMIA
     Dosage: 200 MG, BID
     Route: 048
  2. GAPENTIN [Concomitant]
     Dosage: 600 MG, BID
  3. BUMEX [Concomitant]
  4. SERTRALINE [Concomitant]
  5. RUVASTIN [Concomitant]
  6. MULTI VITAMIN [Concomitant]
  7. VITAMIIN C [Concomitant]
  8. VITAMIN E [Concomitant]
  9. VITAMIN D3 [Concomitant]
  10. FOLIC ACID [Concomitant]

REACTIONS (3)
  - Weight decreased [Unknown]
  - Flatulence [Unknown]
  - Abdominal distension [Unknown]
